FAERS Safety Report 19712956 (Version 1)
Quarter: 2021Q3

REPORT INFORMATION
  Report Type: Spontaneous
  Country: US (occurrence: US)
  Receive Date: 20210817
  Receipt Date: 20210817
  Transmission Date: 20211014
  Serious: Yes (Other)
  Sender: FDA-Public Use
  Company Number: NVSC2021US185207

PATIENT
  Age: 15 Year
  Sex: Male

DRUGS (5)
  1. DOXORUBICIN [Suspect]
     Active Substance: DOXORUBICIN
     Indication: OSTEOSARCOMA
     Dosage: 37 MG/M2, CYCLIC (DAYS 1?2, WEEK 1, CYCLES 1?2)
     Route: 065
  2. DEXRAZOXANE. [Concomitant]
     Active Substance: DEXRAZOXANE
     Indication: CARDIOVASCULAR EVENT PROPHYLAXIS
     Dosage: 370 MG/M2, CYCLIC (DAYS 1?2, WEEK 1, CYCLES 1?2)
     Route: 065
  3. CISPLATIN. [Suspect]
     Active Substance: CISPLATIN
     Indication: OSTEOSARCOMA
     Dosage: 60 MG/M2, CYCLIC (DAYS 1?2, WEEK 1, CYCLES 1?2)
     Route: 065
  4. METHOTREXATE. [Suspect]
     Active Substance: METHOTREXATE
     Indication: OSTEOSARCOMA
     Dosage: 12 G/M2, CYCLIC (HIGH DOSE, WEEK 4, CYCLES 1?2)
     Route: 065
  5. METHOTREXATE. [Suspect]
     Active Substance: METHOTREXATE
     Dosage: 12 G/M2, CYCLIC (HIGH DOSE, WEEK 5, CYCLES 1?2)
     Route: 065

REACTIONS (2)
  - Cardiotoxicity [Unknown]
  - Nephropathy toxic [Unknown]
